FAERS Safety Report 9736086 (Version 2)
Quarter: 2014Q1

REPORT INFORMATION
  Report Type: Spontaneous
  Country: FR (occurrence: FR)
  Receive Date: 20131206
  Receipt Date: 20140219
  Transmission Date: 20141002
  Serious: Yes (Life-Threatening, Hospitalization)
  Sender: FDA-Public Use
  Company Number: FR-GLAXOSMITHKLINE-B0948042A

PATIENT
  Age: 38 Year
  Sex: Male

DRUGS (2)
  1. REVOLADE [Suspect]
     Indication: EVANS SYNDROME
     Route: 048
     Dates: start: 20130916, end: 20131107
  2. DIFFU K [Concomitant]
     Route: 065

REACTIONS (5)
  - Pulmonary embolism [Recovered/Resolved]
  - Abdominal pain [Recovered/Resolved]
  - Constipation [Recovered/Resolved]
  - Dyspnoea [Recovered/Resolved]
  - Off label use [Unknown]
